FAERS Safety Report 20161776 (Version 2)
Quarter: 2022Q1

REPORT INFORMATION
  Report Type: Spontaneous
  Country: US (occurrence: US)
  Receive Date: 20211208
  Receipt Date: 20220308
  Transmission Date: 20220423
  Serious: Yes (Hospitalization)
  Sender: FDA-Public Use
  Company Number: US-CELGENE-USA-20211108512

PATIENT
  Age: 77 Year
  Sex: Male

DRUGS (9)
  1. ABRAXANE [Suspect]
     Active Substance: PACLITAXEL
     Indication: Product used for unknown indication
     Route: 041
     Dates: start: 20211015
  2. ABRAXANE [Suspect]
     Active Substance: PACLITAXEL
     Route: 041
     Dates: start: 20211029
  3. ALPRAZOLAM [Concomitant]
     Active Substance: ALPRAZOLAM
     Indication: Anxiety
     Route: 048
     Dates: start: 20210923
  4. SENNA [Concomitant]
     Active Substance: SENNA LEAF\SENNOSIDES\SENNOSIDES A AND B
     Indication: Constipation
     Route: 048
     Dates: start: 20210923
  5. OXCARBAZEPINE [Concomitant]
     Active Substance: OXCARBAZEPINE
     Indication: Seizure
     Dosage: 450 MILLIGRAM
     Route: 048
     Dates: start: 20210923
  6. POLYETHYLENE GLYCOL [Concomitant]
     Active Substance: POLYETHYLENE GLYCOL
     Indication: Constipation
     Route: 048
     Dates: start: 20210923
  7. TAMSULOSIN [Concomitant]
     Active Substance: TAMSULOSIN
     Indication: Benign prostatic hyperplasia
     Dosage: .4 MILLIGRAM
     Route: 048
     Dates: start: 20210923
  8. TOPIRAMATE [Concomitant]
     Active Substance: TOPIRAMATE
     Indication: Headache
     Dosage: 150 MILLIGRAM
     Route: 048
     Dates: start: 20210923
  9. CIPROFLOXACIN [Concomitant]
     Active Substance: CIPROFLOXACIN
     Indication: Product used for unknown indication
     Route: 065

REACTIONS (2)
  - Enterocolitis infectious [Recovered/Resolved]
  - Sepsis [Recovered/Resolved]

NARRATIVE: CASE EVENT DATE: 20211116
